FAERS Safety Report 13589873 (Version 2)
Quarter: 2021Q2

REPORT INFORMATION
  Report Type: Other
  Country: DE (occurrence: DE)
  Receive Date: 20170529
  Receipt Date: 20210414
  Transmission Date: 20210716
  Serious: Yes (Other)
  Sender: FDA-Public Use
  Company Number: DE-LUPIN PHARMACEUTICALS INC.-2017-02561

PATIENT

DRUGS (6)
  1. CARBAMAZEPIN [Suspect]
     Active Substance: CARBAMAZEPINE
     Dosage: 500 MILLIGRAM, BID
     Route: 064
     Dates: start: 20160522, end: 20170117
  2. ZONEGRAN [Suspect]
     Active Substance: ZONISAMIDE
     Indication: EPILEPSY
     Dosage: 200 MILLIGRAM, QD
     Route: 064
     Dates: start: 20160508, end: 20170117
  3. ZONEGRAN [Suspect]
     Active Substance: ZONISAMIDE
     Dosage: 200 MILLIGRAM, QD
     Route: 064
     Dates: start: 20160522, end: 20170117
  4. CARBAMAZEPIN [Suspect]
     Active Substance: CARBAMAZEPINE
     Indication: EPILEPSY
     Dosage: 500 MILLIGRAM, BID
     Route: 064
     Dates: start: 20160508, end: 20170117
  5. LEVETIRACETAM. [Suspect]
     Active Substance: LEVETIRACETAM
     Indication: EPILEPSY
     Dosage: 500 MILLIGRAM, BID
     Route: 064
     Dates: start: 20160508, end: 20170117
  6. LEVETIRACETAM. [Suspect]
     Active Substance: LEVETIRACETAM
     Dosage: 500 MILLIGRAM, BID
     Route: 064
     Dates: start: 20160522, end: 20170117

REACTIONS (10)
  - Neonatal pneumonia [Recovered/Resolved]
  - Tachyarrhythmia [Not Recovered/Not Resolved]
  - Small for dates baby [Unknown]
  - Pulmonary hypertension [Recovered/Resolved]
  - Premature baby [Unknown]
  - Disseminated intravascular coagulation [Recovered/Resolved]
  - Low birth weight baby [Unknown]
  - Foetal exposure during pregnancy [Unknown]
  - Neonatal hypotension [Recovered/Resolved]
  - Respiratory disorder neonatal [Recovered/Resolved]

NARRATIVE: CASE EVENT DATE: 2016
